FAERS Safety Report 16679496 (Version 3)
Quarter: 2019Q3

REPORT INFORMATION
  Report Type: Spontaneous
  Country: JP (occurrence: JP)
  Receive Date: 20190807
  Receipt Date: 20190823
  Transmission Date: 20191004
  Serious: Yes (Hospitalization)
  Sender: FDA-Public Use
  Company Number: JP-ASTRAZENECA-2019SE98576

PATIENT
  Age: 30400 Day
  Sex: Female
  Weight: 49 kg

DRUGS (5)
  1. NEXIUM [Suspect]
     Active Substance: ESOMEPRAZOLE MAGNESIUM
     Indication: GASTROOESOPHAGEAL REFLUX DISEASE
     Route: 048
     Dates: start: 20130523, end: 20171209
  2. LENDORMIN D [Interacting]
     Active Substance: BROTIZOLAM
     Indication: INSOMNIA
     Route: 048
     Dates: start: 20130604, end: 20171209
  3. CEROCRAL [Interacting]
     Active Substance: IFENPRODIL
     Indication: DIZZINESS
     Route: 048
     Dates: start: 20131008, end: 20171209
  4. FRANDOL [Interacting]
     Active Substance: ISOSORBIDE DINITRATE
     Indication: ANGINA PECTORIS
     Route: 062
     Dates: start: 20130425, end: 20171209
  5. CADUET [Interacting]
     Active Substance: AMLODIPINE BESYLATE\ATORVASTATIN CALCIUM
     Indication: HYPERTENSION
     Route: 048
     Dates: start: 20170904, end: 20171209

REACTIONS (6)
  - Vomiting [Recovered/Resolved]
  - Urinary tract infection [Recovered/Resolved]
  - Pharyngitis [Recovered/Resolved]
  - Drug interaction [Unknown]
  - Erythema multiforme [Recovered/Resolved]
  - Pneumonia [Recovered/Resolved]

NARRATIVE: CASE EVENT DATE: 20171124
